FAERS Safety Report 21142291 (Version 2)
Quarter: 2022Q3

REPORT INFORMATION
  Report Type: Spontaneous
  Country: US (occurrence: US)
  Receive Date: 20220728
  Receipt Date: 20220729
  Transmission Date: 20221027
  Serious: Yes (Death, Hospitalization)
  Sender: FDA-Public Use
  Company Number: US-LUPIN PHARMACEUTICALS INC.-2022-09848

PATIENT
  Age: 72 Year
  Sex: Male

DRUGS (12)
  1. LEVOFLOXACIN [Suspect]
     Active Substance: LEVOFLOXACIN
     Indication: Antibiotic therapy
     Dosage: UNK
     Route: 065
  2. LEVOFLOXACIN [Suspect]
     Active Substance: LEVOFLOXACIN
     Indication: Evidence based treatment
  3. LEVOFLOXACIN [Suspect]
     Active Substance: LEVOFLOXACIN
     Indication: Ureaplasma infection
  4. DOXYCYCLINE [Suspect]
     Active Substance: DOXYCYCLINE
     Indication: Antibiotic therapy
     Dosage: UNK
     Route: 065
  5. DOXYCYCLINE [Suspect]
     Active Substance: DOXYCYCLINE
     Indication: Evidence based treatment
  6. DOXYCYCLINE [Suspect]
     Active Substance: DOXYCYCLINE
     Indication: Ureaplasma infection
  7. LACTULOSE [Concomitant]
     Active Substance: LACTULOSE
     Indication: Hyperammonaemia
     Dosage: UNK
     Route: 065
  8. RIFAXIMIN [Concomitant]
     Active Substance: RIFAXIMIN
     Indication: Hyperammonaemia
     Dosage: UNK
     Route: 065
  9. SODIUM PHENYLACETATE AND SODIUM BENZOATE [Concomitant]
     Active Substance: SODIUM BENZOATE\SODIUM PHENYLACETATE
     Indication: Hyperammonaemia
     Dosage: UNK
     Route: 065
  10. ARGININE [Concomitant]
     Active Substance: ARGININE
     Indication: Hyperammonaemia
     Dosage: UNK
     Route: 065
  11. MANNITOL [Concomitant]
     Active Substance: MANNITOL
     Indication: Intracranial pressure increased
     Dosage: UNK
     Route: 065
  12. SODIUM CHLORIDE [Concomitant]
     Active Substance: SODIUM CHLORIDE
     Indication: Intracranial pressure increased
     Dosage: UNK
     Route: 065

REACTIONS (2)
  - Drug ineffective for unapproved indication [Fatal]
  - Off label use [Unknown]
